FAERS Safety Report 4666107-9 (Version None)
Quarter: 2005Q2

REPORT INFORMATION
  Report Type: 
  Country: None (occurrence: None)
  Receive Date: 20050519
  Receipt Date: 20050512
  Transmission Date: 20051028
  Serious: Yes (Other)
  Sender: FDA-Public Use
  Company Number: ES-GLAXOSMITHKLINE-B0381392A

PATIENT
  Age: 65 Year
  Sex: Male
  Weight: 90 kg

DRUGS (3)
  1. AVODART [Suspect]
     Indication: PSYCHOSEXUAL DISORDER
     Dosage: .5MG PER DAY
     Route: 048
     Dates: start: 20041001, end: 20050201
  2. TAMSULOSIN HCL [Concomitant]
     Indication: BENIGN PROSTATIC HYPERPLASIA
     Dosage: .4MG PER DAY
     Route: 048
     Dates: start: 20030501
  3. METFORMIN HCL [Concomitant]
     Dates: start: 20041101

REACTIONS (3)
  - BENIGN PROSTATIC HYPERPLASIA [None]
  - ERECTILE DYSFUNCTION [None]
  - LIBIDO DECREASED [None]
